FAERS Safety Report 9396064 (Version 1)
Quarter: 2013Q3

REPORT INFORMATION
  Report Type: Report from Study
  Country: US (occurrence: US)
  Receive Date: 20130711
  Receipt Date: 20130711
  Transmission Date: 20140515
  Serious: Yes (Hospitalization)
  Sender: FDA-Public Use
  Company Number: US-ABBOTT-13P-163-1114904-00

PATIENT
  Age: 57 Year
  Sex: Female
  Weight: 83.99 kg

DRUGS (3)
  1. HUMIRA [Suspect]
     Indication: RHEUMATOID ARTHRITIS
     Dates: start: 2010, end: 20130531
  2. HUMIRA [Suspect]
     Dates: start: 20130614
  3. METHOTREXATE [Concomitant]
     Indication: PRODUCT USED FOR UNKNOWN INDICATION

REACTIONS (6)
  - Cough [Recovered/Resolved]
  - Pneumonia [Recovered/Resolved]
  - Dyspnoea [Recovered/Resolved]
  - Arthralgia [Not Recovered/Not Resolved]
  - Sinusitis [Recovered/Resolved]
  - Insomnia [Not Recovered/Not Resolved]
